FAERS Safety Report 8013685-8 (Version None)
Quarter: 2011Q4

REPORT INFORMATION
  Report Type: 
  Country: None (occurrence: None)
  Receive Date: 20111229
  Receipt Date: 20111222
  Transmission Date: 20120403
  Serious: Yes (Hospitalization)
  Sender: FDA-Public Use
  Company Number: CA-PFIZER INC-2011065807

PATIENT
  Age: 50 Year
  Sex: Female

DRUGS (6)
  1. AREPANRIX H1N1 [Concomitant]
     Dosage: UNK
     Dates: start: 20091107, end: 20091107
  2. RYTHMOL [Suspect]
     Indication: PALPITATIONS
     Dosage: 300 MG, UNK
     Route: 048
     Dates: start: 20081001
  3. BLINDED THERAPY [Suspect]
     Indication: NON-SMALL CELL LUNG CANCER
     Dosage: UNK
     Route: 030
     Dates: start: 20110105, end: 20110105
  4. ALTACE [Suspect]
     Indication: HYPERTENSION
     Dosage: 5 MG
     Route: 048
     Dates: start: 20101102, end: 20110127
  5. INDAPAMIDE [Concomitant]
     Dosage: UNK
     Dates: start: 20091115
  6. TENORMIN [Suspect]
     Indication: HYPERTENSION
     Dosage: 100 MG, UNK
     Route: 048
     Dates: start: 20091115

REACTIONS (1)
  - BRADYARRHYTHMIA [None]
